FAERS Safety Report 4808650-5 (Version None)
Quarter: 2005Q4

REPORT INFORMATION
  Report Type: 
  Country: None (occurrence: None)
  Receive Date: 20051025
  Receipt Date: 20050928
  Transmission Date: 20060501
  Serious: Yes (Other)
  Sender: FDA-Public Use
  Company Number: JP-NOVOPROD-247381

PATIENT
  Age: 55 Year
  Sex: Male
  Weight: 68 kg

DRUGS (3)
  1. NOVORAPID CHU FLEXPEN [Suspect]
     Indication: DIABETES MELLITUS
     Dosage: 12 IU, QD
     Route: 058
     Dates: start: 20050825
  2. MEDET [Suspect]
     Dates: start: 20050217
  3. LANTUS [Suspect]
     Dosage: 2 IU, UNK
     Dates: start: 20050825

REACTIONS (1)
  - HEPATITIS [None]
